FAERS Safety Report 25395354 (Version 1)
Quarter: 2025Q2

REPORT INFORMATION
  Report Type: Spontaneous
  Country: US (occurrence: US)
  Receive Date: 20250604
  Receipt Date: 20250604
  Transmission Date: 20250717
  Serious: No
  Sender: SETON PHARMACEUTICALS
  Company Number: US-SETONPHARMA-2025SETSPO00009

PATIENT
  Age: 72 Year
  Sex: Male
  Weight: 235 kg

DRUGS (2)
  1. HYDROCORTISONE ACETATE\LIDOCAINE HYDROCHLORIDE [Suspect]
     Active Substance: HYDROCORTISONE ACETATE\LIDOCAINE HYDROCHLORIDE
     Indication: Haemorrhoids
     Route: 054
     Dates: start: 20241212, end: 202412
  2. ATORVASTATIN CALCIUM [Concomitant]
     Active Substance: ATORVASTATIN CALCIUM

REACTIONS (4)
  - Drug ineffective [Unknown]
  - Product residue present [Unknown]
  - Product solubility abnormal [Unknown]
  - Product substitution issue [Unknown]

NARRATIVE: CASE EVENT DATE: 20241212
